FAERS Safety Report 8201187-5 (Version None)
Quarter: 2012Q1

REPORT INFORMATION
  Report Type: 
  Country: None (occurrence: None)
  Receive Date: 20120312
  Receipt Date: 20120301
  Transmission Date: 20120608
  Serious: Yes (Other)
  Sender: FDA-Public Use
  Company Number: PHHY2012BE018201

PATIENT
  Sex: Female

DRUGS (2)
  1. SANDOSTATIN LAR [Suspect]
     Dosage: UNK UKN, UNK
     Route: 030
  2. SANDOSTATIN LAR [Suspect]
     Dosage: UNK UKN, UNK
     Route: 030
     Dates: start: 20110508

REACTIONS (5)
  - INJECTION SITE SWELLING [None]
  - PARALYSIS [None]
  - THROMBOCYTOPENIA [None]
  - HAEMATOMA [None]
  - INJECTION SITE PAIN [None]
